FAERS Safety Report 19680752 (Version 1)
Quarter: 2021Q3

REPORT INFORMATION
  Report Type: Spontaneous
  Country: US (occurrence: US)
  Receive Date: 20210810
  Receipt Date: 20210810
  Transmission Date: 20211014
  Serious: Yes (Hospitalization)
  Sender: FDA-Public Use
  Company Number: None

PATIENT
  Age: 62 Year
  Sex: Male
  Weight: 79.4 kg

DRUGS (1)
  1. OPTIRAY 300 [Suspect]
     Active Substance: IOVERSOL
     Indication: CEREBROVASCULAR OPERATION
     Dates: start: 20200218, end: 20200218

REACTIONS (1)
  - Carotid artery thrombosis [None]

NARRATIVE: CASE EVENT DATE: 20200218
